FAERS Safety Report 15992382 (Version 2)
Quarter: 2019Q1

REPORT INFORMATION
  Report Type: Spontaneous
  Country: US (occurrence: US)
  Receive Date: 20190221
  Receipt Date: 20190311
  Transmission Date: 20190418
  Serious: No
  Sender: FDA-Public Use
  Company Number: US-ALLERGAN-1836438US

PATIENT
  Age: 70 Year
  Sex: Female

DRUGS (3)
  1. OXYTROL FOR WOMEN [Suspect]
     Active Substance: OXYBUTYNIN
     Indication: CYSTITIS INTERSTITIAL
     Dosage: ALTERNATES WITH GELNIQUE, LEAVES ON FOR 4 DAYS
     Route: 062
     Dates: start: 201801
  2. OXYTROL FOR WOMEN [Suspect]
     Active Substance: OXYBUTYNIN
     Dosage: ALTERNATES WITH GELNIQUE, LEAVES ON FOR 4 DAYS
     Route: 062
     Dates: start: 201801
  3. GELNIQUE [Concomitant]
     Active Substance: OXYBUTYNIN
     Indication: HYPERTONIC BLADDER
     Dosage: ALTERNATES WITH OXYTROL
     Route: 061

REACTIONS (4)
  - Off label use [Unknown]
  - Product residue present [Unknown]
  - Product packaging issue [Unknown]
  - Erythema [Not Recovered/Not Resolved]
